FAERS Safety Report 10479698 (Version 1)
Quarter: 2014Q3

REPORT INFORMATION
  Report Type: Spontaneous
  Country: US (occurrence: None)
  Receive Date: 20140926
  Receipt Date: 20140926
  Transmission Date: 20150326
  Serious: Yes (Hospitalization)
  Sender: FDA-Public Use
  Company Number: None

PATIENT
  Age: 47 Year
  Sex: Female
  Weight: 86 kg

DRUGS (4)
  1. ESTRADIOL. [Concomitant]
     Active Substance: ESTRADIOL
  2. ASPIRIN. [Concomitant]
     Active Substance: ASPIRIN
  3. VELIVET TRIPHASIC REGIMEN [Suspect]
     Active Substance: DESOGESTREL\ETHINYL ESTRADIOL
     Indication: CONTRACEPTION
     Dosage: 1 TABLET, QD , ORAL
     Route: 048
  4. LEVONORGESTEROL/ETHINYL ESTRADIAL (TRIVORA 28) [Concomitant]

REACTIONS (4)
  - Abdominal pain [None]
  - Haematemesis [None]
  - Portal vein thrombosis [None]
  - Mesenteric vein thrombosis [None]

NARRATIVE: CASE EVENT DATE: 20140914
